FAERS Safety Report 9416793 (Version 1)
Quarter: 2013Q3

REPORT INFORMATION
  Report Type: Spontaneous
  Country: US (occurrence: US)
  Receive Date: 20130724
  Receipt Date: 20130724
  Transmission Date: 20140515
  Serious: No
  Sender: FDA-Public Use
  Company Number: US-GALDERMA-US13000503

PATIENT
  Age: 61 Year
  Sex: Male
  Weight: 91 kg

DRUGS (8)
  1. ORACEA (DOXYCYCLINE, USP) CAPSULES 40 MG [Suspect]
     Indication: ROSACEA
     Route: 048
     Dates: start: 2008
  2. MULTIVITAMIN [Concomitant]
     Route: 048
  3. CENTRUM SILVER [Concomitant]
     Route: 048
     Dates: start: 2008
  4. METAMUCIL [Concomitant]
     Route: 048
     Dates: start: 2008
  5. CINNAMON [Concomitant]
     Route: 048
     Dates: start: 2012
  6. GARLIQUE [Concomitant]
     Route: 048
     Dates: start: 2008
  7. GNC FISH OIL [Concomitant]
     Route: 048
     Dates: start: 2010
  8. MODUCARE [Concomitant]
     Route: 048
     Dates: start: 2010

REACTIONS (2)
  - Red blood cell count decreased [Unknown]
  - White blood cell count decreased [Unknown]
